FAERS Safety Report 9103480 (Version 1)
Quarter: 2013Q1

REPORT INFORMATION
  Report Type: Spontaneous
  Country: US (occurrence: US)
  Receive Date: 20130219
  Receipt Date: 20130219
  Transmission Date: 20140127
  Serious: Yes (Other)
  Sender: FDA-Public Use
  Company Number: US-ASTRAZENECA-2013SE10356

PATIENT
  Age: 57 Year
  Sex: Male
  Weight: 108.9 kg

DRUGS (5)
  1. NEXIUM [Suspect]
     Indication: GASTROOESOPHAGEAL REFLUX DISEASE
     Route: 048
     Dates: start: 2007
  2. PLAVIX [Interacting]
     Indication: STENT PLACEMENT
     Dates: start: 2006
  3. ASPIRIN [Concomitant]
     Dates: start: 2006
  4. LOSARTAN [Concomitant]
     Indication: BLOOD PRESSURE ABNORMAL
  5. BYSTOLIC [Concomitant]
     Indication: BLOOD PRESSURE ABNORMAL

REACTIONS (8)
  - Drug interaction [Unknown]
  - Myocardial infarction [Unknown]
  - Gastrooesophageal reflux disease [Unknown]
  - Type 2 diabetes mellitus [Unknown]
  - Weight increased [Unknown]
  - Neuropathy peripheral [Unknown]
  - Increased appetite [Unknown]
  - Drug dose omission [Unknown]
